FAERS Safety Report 4659498-6 (Version None)
Quarter: 2005Q2

REPORT INFORMATION
  Report Type: 
  Country: None (occurrence: None)
  Receive Date: 20050511
  Receipt Date: 20050429
  Transmission Date: 20051028
  Serious: Yes (Other)
  Sender: FDA-Public Use
  Company Number: 2005068900

PATIENT
  Sex: Female

DRUGS (1)
  1. COLLOMACK                      (SALICYLIC ACID) [Suspect]
     Dosage: TOPICAL
     Route: 061

REACTIONS (3)
  - SEPSIS [None]
  - SKIN DISCOLOURATION [None]
  - THROMBOSIS [None]
